FAERS Safety Report 23487857 (Version 1)
Quarter: 2024Q1

REPORT INFORMATION
  Report Type: Spontaneous
  Country: US (occurrence: None)
  Receive Date: 20240205
  Receipt Date: 20240205
  Transmission Date: 20240409
  Serious: Yes (Other)
  Sender: FDA-Public Use
  Company Number: None

PATIENT
  Age: 55 Year
  Sex: Male
  Weight: 87.75 kg

DRUGS (4)
  1. MONTELUKAST SODIUM [Suspect]
     Active Substance: MONTELUKAST SODIUM
     Indication: Multiple allergies
     Dosage: FREQUENCY : DAILY;?
     Route: 048
     Dates: start: 20231207, end: 20240202
  2. TAMSULOSIN [Concomitant]
     Active Substance: TAMSULOSIN
  3. TRAZODONE [Concomitant]
     Active Substance: TRAZODONE HYDROCHLORIDE
  4. ESCITALOPRAM [Concomitant]
     Active Substance: ESCITALOPRAM OXALATE

REACTIONS (13)
  - Mental disorder [None]
  - Agitation [None]
  - Attention deficit hyperactivity disorder [None]
  - Nightmare [None]
  - Depression [None]
  - Confusional state [None]
  - Anxiety [None]
  - Irritability [None]
  - Memory impairment [None]
  - Obsessive-compulsive disorder [None]
  - Restlessness [None]
  - Sleep disorder [None]
  - Suicidal ideation [None]

NARRATIVE: CASE EVENT DATE: 20240202
